FAERS Safety Report 24102860 (Version 2)
Quarter: 2024Q3

REPORT INFORMATION
  Report Type: Report from Study
  Country: US (occurrence: US)
  Receive Date: 20240717
  Receipt Date: 20240909
  Transmission Date: 20241017
  Serious: Yes (Hospitalization)
  Sender: ASTELLAS
  Company Number: US-ASTELLAS-2024US020133

PATIENT
  Age: 73 Year
  Sex: Male

DRUGS (1)
  1. ENZALUTAMIDE [Suspect]
     Active Substance: ENZALUTAMIDE
     Indication: Product used for unknown indication
     Dosage: 120 MG, ONCE DAILY
     Route: 048

REACTIONS (4)
  - Malaise [Unknown]
  - Cognitive disorder [Unknown]
  - Urinary tract infection [Unknown]
  - Underdose [Unknown]
